FAERS Safety Report 4712015-4 (Version None)
Quarter: 2005Q3

REPORT INFORMATION
  Report Type: 
  Country: None (occurrence: None)
  Receive Date: 20050711
  Receipt Date: 20050711
  Transmission Date: 20060218
  Serious: Yes (Hospitalization)
  Sender: FDA-Public Use
  Company Number: None

PATIENT
  Age: 15 Year
  Sex: Female
  Weight: 63.5036 kg

DRUGS (2)
  1. LITHIUM-CONTROLLED RELEASE    450MG [Suspect]
     Indication: BIPOLAR DISORDER
     Dosage: 450MG   BID   ORAL
     Route: 048
     Dates: start: 20050120, end: 20050127
  2. ATOMOXETINE    80MG [Suspect]
     Indication: ATTENTION DEFICIT/HYPERACTIVITY DISORDER
     Dosage: 80MG   QAM   ORAL
     Route: 048
     Dates: start: 20050120, end: 20050127

REACTIONS (28)
  - ABNORMAL BEHAVIOUR [None]
  - AFFECTIVE DISORDER [None]
  - ATTENTION DEFICIT/HYPERACTIVITY DISORDER [None]
  - CATATONIA [None]
  - CONFUSIONAL STATE [None]
  - CYCLOTHYMIC DISORDER [None]
  - DELIRIUM [None]
  - DELUSION [None]
  - DISORIENTATION [None]
  - DRUG ABUSER [None]
  - DRUG INTERACTION [None]
  - DRUG TOXICITY [None]
  - DYSKINESIA [None]
  - GRANDIOSITY [None]
  - HALLUCINATION, TACTILE [None]
  - HALLUCINATION, VISUAL [None]
  - INSOMNIA [None]
  - IRRITABILITY [None]
  - MENTAL STATUS CHANGES [None]
  - NEUROTOXICITY [None]
  - PSYCHOMOTOR RETARDATION [None]
  - SEDATION [None]
  - SOMATIC DELUSION [None]
  - SPEECH DISORDER [None]
  - TACHYCARDIA [None]
  - THINKING ABNORMAL [None]
  - TREMOR [None]
  - WEIGHT INCREASED [None]
